FAERS Safety Report 9163165 (Version 1)
Quarter: 2013Q1

REPORT INFORMATION
  Report Type: Spontaneous
  Country: ES (occurrence: None)
  Receive Date: 20130227
  Receipt Date: 20130227
  Transmission Date: 20140127
  Serious: Yes (Other)
  Sender: FDA-Public Use
  Company Number: DSM-2013-00231

PATIENT
  Age: 78 Year
  Sex: Female

DRUGS (7)
  1. SEVIKAR HCT (TABLET) [Suspect]
     Indication: HYPERTENSION
     Dosage: 40/5/12.5 MG (1 IN 1 D), ORAL
     Route: 048
     Dates: start: 20120626, end: 20120829
  2. CARVEDILOL [Suspect]
     Indication: HYPERTENSION
     Dosage: 100 MG (50 MG, 2 IN 1 D), ORAL
     Route: 048
     Dates: start: 20120823, end: 20120829
  3. EMCONCOR [Suspect]
     Indication: HYPERTENSION
     Dosage: 5 MG (5 MG, 1 IN 1 D), ORAL
     Route: 048
     Dates: start: 20120410, end: 20120829
  4. METFORMIN (METFORMIN) (METFORMIN) [Concomitant]
  5. VILDAGLIPTIN (VILDAGLIPTIN) (VILDAGLIPTIN) [Concomitant]
  6. OPTRUMA (RALOXIFENE HYDROCHLORIDE) (RALOXIFENE HYDROCHLORIDE) [Concomitant]
  7. VYTORIN (SIMVASTATIN, EZETIMIBE) (SIMVASTATIN, EZETIMIBEO [Concomitant]

REACTIONS (6)
  - Drug interaction [None]
  - Syncope [None]
  - Hyperkalaemia [None]
  - Atrioventricular block complete [None]
  - Nodal rhythm [None]
  - Electrocardiogram repolarisation abnormality [None]
